FAERS Safety Report 5715087-3 (Version None)
Quarter: 2008Q2

REPORT INFORMATION
  Report Type: 
  Country: None (occurrence: None)
  Receive Date: 20080423
  Receipt Date: 20080422
  Transmission Date: 20081010
  Serious: Yes (Hospitalization)
  Sender: FDA-Public Use
  Company Number: US-BOEHRINGER INGELHEIM GMBH, GERMANY-2008-DE-02406GD

PATIENT
  Age: 40 Year
  Sex: Female

DRUGS (3)
  1. MORPHINE SULFATE [Suspect]
     Indication: PROCEDURAL PAIN
     Dosage: UP TO 40 MG
     Route: 042
  2. MORPHINE SULFATE [Suspect]
     Indication: ABDOMINAL PAIN
     Dosage: 40 MG - 60 MG
     Route: 042
  3. MORPHINE SULFATE [Suspect]
     Route: 042

REACTIONS (9)
  - ABDOMINAL PAIN [None]
  - ADVERSE DRUG REACTION [None]
  - ANASTOMOTIC COMPLICATION [None]
  - CONSTIPATION [None]
  - INTESTINAL FUNCTIONAL DISORDER [None]
  - NAUSEA [None]
  - PERITONITIS [None]
  - SMALL INTESTINAL OBSTRUCTION [None]
  - VOMITING [None]
